FAERS Safety Report 8560394-2 (Version None)
Quarter: 2012Q3

REPORT INFORMATION
  Report Type: 
  Country: None (occurrence: None)
  Receive Date: 20120802
  Receipt Date: 20120719
  Transmission Date: 20120928
  Serious: Yes (Death)
  Sender: FDA-Public Use
  Company Number: AU-ROCHE-1096009

PATIENT
  Age: 64 Year
  Sex: Female

DRUGS (10)
  1. ACETAMINOPHEN [Concomitant]
  2. ENOXAPARIN SODIUM [Concomitant]
  3. RITUXIMAB [Suspect]
     Indication: PRODUCT USED FOR UNKNOWN INDICATION
     Route: 042
  4. DIGOXIN [Concomitant]
  5. MOVIPREP [Concomitant]
  6. NASONEX [Concomitant]
  7. DEXAMETHASONE [Concomitant]
  8. ESOMEPRAZOLE MAGNESIUM [Concomitant]
  9. PHENYTOIN SODIUM [Concomitant]
  10. ROSUVASTATIN [Concomitant]

REACTIONS (2)
  - COMA SCALE ABNORMAL [None]
  - CEREBRAL HAEMORRHAGE [None]
